FAERS Safety Report 11607467 (Version 3)
Quarter: 2015Q4

REPORT INFORMATION
  Report Type: Spontaneous
  Country: DE (occurrence: DE)
  Receive Date: 20151007
  Receipt Date: 20151123
  Transmission Date: 20160304
  Serious: Yes (Other)
  Sender: FDA-Public Use
  Company Number: DE-UCBSA-2015031229

PATIENT
  Age: 50 Year
  Sex: Male

DRUGS (8)
  1. VIMPAT [Suspect]
     Active Substance: LACOSAMIDE
     Indication: PRODUCT USED FOR UNKNOWN INDICATION
     Dosage: 5 ML, ONCE DAILY (QD), 0-0-5ML
     Dates: start: 20150903, end: 20150903
  2. VIMPAT [Suspect]
     Active Substance: LACOSAMIDE
     Dosage: 50 MG, 2X/DAY (BID), 5-0-5ML
     Dates: start: 20150904
  3. KEPPRA [Suspect]
     Active Substance: LEVETIRACETAM
     Dosage: 13-0-14, 2X/DAY (BID)
     Dates: start: 20150130, end: 2015
  4. CALCIUM [Concomitant]
     Active Substance: CALCIUM
     Indication: CALCIUM DEFICIENCY
     Dosage: 500 (1-0-0)
  5. KEPPRA [Suspect]
     Active Substance: LEVETIRACETAM
     Indication: PRODUCT USED FOR UNKNOWN INDICATION
     Dosage: STRENGTH: 100 MG/ML, 12 ML, 2X/DAY (BID), 12-0-12
  6. KEPPRA [Suspect]
     Active Substance: LEVETIRACETAM
     Dosage: 12(ML)-0-13(ML), BID
     Dates: start: 20150120, end: 201501
  7. KEPPRA [Suspect]
     Active Substance: LEVETIRACETAM
     Dosage: 13 ML, 2X/DAY (BID) (13-0-13)
     Dates: start: 20150125, end: 201501
  8. KEPPRA [Suspect]
     Active Substance: LEVETIRACETAM
     Dosage: 1400 MG, 2X/DAY (BID), 14-0-14
     Dates: start: 20150204

REACTIONS (5)
  - Off label use [Unknown]
  - Myoclonic epilepsy [Recovering/Resolving]
  - Generalised tonic-clonic seizure [Unknown]
  - Apnoea [Recovered/Resolved]
  - Calcium deficiency [Unknown]

NARRATIVE: CASE EVENT DATE: 20150925
